FAERS Safety Report 21049372 (Version 1)
Quarter: 2022Q3

REPORT INFORMATION
  Report Type: Spontaneous
  Country: US (occurrence: None)
  Receive Date: 20220706
  Receipt Date: 20220706
  Transmission Date: 20221026
  Serious: Yes (unspecified)
  Sender: FDA-Public Use
  Company Number: None

PATIENT
  Age: 34 Year
  Sex: Female
  Weight: 88.65 kg

DRUGS (1)
  1. VITAMINS [Suspect]
     Active Substance: VITAMINS
     Indication: Vomiting

REACTIONS (4)
  - Hypertension [None]
  - Feeling hot [None]
  - Chest discomfort [None]
  - Infusion related reaction [None]

NARRATIVE: CASE EVENT DATE: 20220313
